FAERS Safety Report 8558886-5 (Version None)
Quarter: 2012Q3

REPORT INFORMATION
  Report Type: 
  Country: None (occurrence: None)
  Receive Date: 20120801
  Receipt Date: 20120717
  Transmission Date: 20120928
  Serious: Yes (Other)
  Sender: FDA-Public Use
  Company Number: CHPA2012US015844

PATIENT
  Age: 60 Year
  Sex: Female

DRUGS (3)
  1. EXCEDRIN EXTRA STRENGTH TABLETS [Suspect]
     Indication: MIGRAINE
     Dosage: AS NEEDED ONCE OR TWICE A WEEK
     Route: 048
     Dates: start: 19750101, end: 20110101
  2. NAPROSYN [Concomitant]
     Indication: BLOOD PRESSURE MANAGEMENT
     Dosage: 50 MG, UNK
  3. EXCEDRIN EXTRA STRENGTH TABLETS [Suspect]
     Dosage: 1 DF, UNK
     Route: 048
     Dates: start: 19940101, end: 19940101

REACTIONS (5)
  - MIGRAINE WITH AURA [None]
  - MUSCLE RUPTURE [None]
  - CONTUSION [None]
  - BLINDNESS TRANSIENT [None]
  - UNDERDOSE [None]
